FAERS Safety Report 8022602-6 (Version None)
Quarter: 2012Q1

REPORT INFORMATION
  Report Type: 
  Country: None (occurrence: None)
  Receive Date: 20120104
  Receipt Date: 20120103
  Transmission Date: 20120608
  Serious: Yes (Hospitalization)
  Sender: FDA-Public Use
  Company Number: US-GLAXOSMITHKLINE-B0754383A

PATIENT
  Age: 57 Year
  Sex: Male
  Weight: 113.6 kg

DRUGS (9)
  1. PRAVACHOL [Concomitant]
  2. NEURONTIN [Concomitant]
  3. ALTACE [Concomitant]
  4. AVANDIA [Suspect]
     Indication: DIABETES MELLITUS
     Dosage: 8MG PER DAY
     Route: 048
     Dates: start: 20010101, end: 20070101
  5. NOVOLIN 70/30 [Concomitant]
  6. PROZAC [Concomitant]
  7. LOPRESSOR [Concomitant]
  8. TRICOR [Concomitant]
  9. PEPCID [Concomitant]

REACTIONS (1)
  - MYOCARDIAL INFARCTION [None]
